FAERS Safety Report 14013003 (Version 3)
Quarter: 2017Q4

REPORT INFORMATION
  Report Type: Spontaneous
  Country: US (occurrence: US)
  Receive Date: 20170926
  Receipt Date: 20171122
  Transmission Date: 20180321
  Serious: Yes (Death)
  Sender: FDA-Public Use
  Company Number: US-GLAXOSMITHKLINE-US2017GSK148729

PATIENT
  Sex: Male

DRUGS (1)
  1. VENTOLIN HFA [Suspect]
     Active Substance: ALBUTEROL SULFATE
     Indication: ASTHMA
     Dosage: UNK
     Route: 055

REACTIONS (5)
  - Product quality issue [Unknown]
  - Cardiac disorder [Fatal]
  - Drug ineffective [Unknown]
  - Product use issue [Fatal]
  - Ill-defined disorder [Unknown]
